FAERS Safety Report 9368772 (Version 2)
Quarter: 2013Q3

REPORT INFORMATION
  Report Type: Spontaneous
  Country: US (occurrence: US)
  Receive Date: 20130626
  Receipt Date: 20130708
  Transmission Date: 20140515
  Serious: Yes (Hospitalization, Other)
  Sender: FDA-Public Use
  Company Number: PHHY2013US063264

PATIENT
  Age: 59 Year
  Sex: Male

DRUGS (1)
  1. ZIPRASIDONE [Suspect]
     Indication: SCHIZOPHRENIA
     Dosage: 80 MG, BID

REACTIONS (6)
  - Hypothermia [Recovered/Resolved]
  - Sinus bradycardia [Unknown]
  - Hyporesponsive to stimuli [Unknown]
  - Pupillary reflex impaired [Unknown]
  - Listless [Unknown]
  - Lethargy [Unknown]
